FAERS Safety Report 18879351 (Version 5)
Quarter: 2022Q2

REPORT INFORMATION
  Report Type: Spontaneous
  Country: US (occurrence: US)
  Receive Date: 20210211
  Receipt Date: 20220520
  Transmission Date: 20220721
  Serious: No
  Sender: FDA-Public Use
  Company Number: US-PFIZER INC-2021137738

PATIENT
  Age: 73 Year
  Sex: Female

DRUGS (2)
  1. XELJANZ XR [Suspect]
     Active Substance: TOFACITINIB CITRATE
     Indication: Rheumatoid arthritis
     Dosage: 11 MG, 1X/DAY
     Route: 048
     Dates: start: 202011
  2. XELJANZ XR [Suspect]
     Active Substance: TOFACITINIB CITRATE
     Dosage: 11 MG, 1X/DAY
     Route: 048
     Dates: start: 202011

REACTIONS (9)
  - Diarrhoea [Unknown]
  - Arthralgia [Unknown]
  - Discomfort [Unknown]
  - Frequent bowel movements [Unknown]
  - Fatigue [Unknown]
  - Pain [Unknown]
  - Mood altered [Recovered/Resolved]
  - Product dose omission issue [Unknown]
  - Discouragement [Unknown]
